FAERS Safety Report 5067399-7 (Version None)
Quarter: 2006Q3

REPORT INFORMATION
  Report Type: 
  Country: None (occurrence: None)
  Receive Date: 20060727
  Receipt Date: 20060712
  Transmission Date: 20061208
  Serious: Yes (Hospitalization, Other)
  Sender: FDA-Public Use
  Company Number: PAR_0702_2006

PATIENT
  Age: 75 Year
  Sex: Female

DRUGS (1)
  1. HYDROXYUREA [Suspect]
     Dosage: 500 MG QDAY PO
     Route: 048
     Dates: start: 19960101, end: 20021005

REACTIONS (7)
  - ABSCESS [None]
  - EMBOLISM [None]
  - LEUKOCYTOSIS [None]
  - PLATELET COUNT DECREASED [None]
  - POSTOPERATIVE WOUND COMPLICATION [None]
  - SKIN ULCER [None]
  - THROMBOCYTHAEMIA [None]
